FAERS Safety Report 8986033 (Version 1)
Quarter: 2012Q4

REPORT INFORMATION
  Report Type: Spontaneous
  Country: US (occurrence: None)
  Receive Date: 20121214
  Receipt Date: 20121214
  Transmission Date: 20130627
  Serious: Yes (Hospitalization)
  Sender: FDA-Public Use
  Company Number: ACET20120042

PATIENT
  Age: 20 Year
  Sex: Female

DRUGS (1)
  1. Q-PAP EXTRA STRENGTH [Suspect]
     Dosage: ONE DOSE OF 20 TABS

REACTIONS (10)
  - Suicide attempt [None]
  - Nausea [None]
  - Vomiting [None]
  - Intentional overdose [None]
  - Tachypnoea [None]
  - Alanine aminotransferase increased [None]
  - Aspartate aminotransferase increased [None]
  - Blood creatinine increased [None]
  - Blood bilirubin increased [None]
  - Abdominal pain upper [None]
